FAERS Safety Report 7170020-5 (Version None)
Quarter: 2010Q4

REPORT INFORMATION
  Report Type: 
  Country: None (occurrence: None)
  Receive Date: 20101206
  Receipt Date: 20091215
  Transmission Date: 20110411
  Serious: Yes (Death)
  Sender: FDA-Public Use
  Company Number: 2010005149

PATIENT
  Sex: Male

DRUGS (9)
  1. ERLOTINIB HYDROCHLORIDE [Suspect]
     Indication: NON-SMALL CELL LUNG CANCER
     Dosage: (150 MG,QD),ORAL
     Route: 048
     Dates: start: 20090209, end: 20090222
  2. LEVOCLOPERASTINE FENDIZOATE [Concomitant]
  3. ACETYLCYSTEINE [Concomitant]
  4. PREDNISOLONE [Concomitant]
  5. OXYCODONE HCL [Concomitant]
  6. ROXITHROMYCIN (ROXITHROMYCIN) [Concomitant]
  7. FAMOTIDINE [Concomitant]
  8. MAGNESIUM (MAGNESIUM) [Concomitant]
  9. MOSAPRIDE CITRATE (MOSAPRIDE CITRATE) [Concomitant]

REACTIONS (1)
  - PNEUMONIA [None]
